FAERS Safety Report 15751662 (Version 2)
Quarter: 2019Q1

REPORT INFORMATION
  Report Type: Spontaneous
  Country: US (occurrence: US)
  Receive Date: 20181221
  Receipt Date: 20190124
  Transmission Date: 20190417
  Serious: No
  Sender: FDA-Public Use
  Company Number: US-BAYER-2018-241677

PATIENT
  Age: 34 Year
  Sex: Female

DRUGS (2)
  1. GADAVIST [Suspect]
     Active Substance: GADOBUTROL
     Indication: NUCLEAR MAGNETIC RESONANCE IMAGING
     Dosage: 8 ML, ONCE
     Dates: start: 20181220, end: 20181220
  2. GADAVIST [Suspect]
     Active Substance: GADOBUTROL
     Indication: VERTIGO

REACTIONS (6)
  - Generalised erythema [Recovering/Resolving]
  - Swelling face [Recovering/Resolving]
  - Erythema [Recovering/Resolving]
  - Pruritus [Recovering/Resolving]
  - Feeling abnormal [None]
  - Urticaria [Recovering/Resolving]

NARRATIVE: CASE EVENT DATE: 20181220
